FAERS Safety Report 8123358-9 (Version None)
Quarter: 2012Q1

REPORT INFORMATION
  Report Type: 
  Country: None (occurrence: None)
  Receive Date: 20120208
  Receipt Date: 20120130
  Transmission Date: 20120608
  Serious: Yes (Other)
  Sender: FDA-Public Use
  Company Number: US-ASTRAZENECA-2012SE06926

PATIENT
  Age: 53 Year
  Sex: Female

DRUGS (2)
  1. NEXIUM [Suspect]
     Route: 048
  2. PRILOSEC [Suspect]
     Route: 048

REACTIONS (11)
  - HIATUS HERNIA [None]
  - DRUG DOSE OMISSION [None]
  - DYSPEPSIA [None]
  - ABDOMINAL DISCOMFORT [None]
  - RECTAL CANCER [None]
  - REGURGITATION [None]
  - NAUSEA [None]
  - MALAISE [None]
  - GASTROOESOPHAGEAL REFLUX DISEASE [None]
  - GASTRITIS [None]
  - INSOMNIA [None]
